FAERS Safety Report 12064587 (Version 1)
Quarter: 2016Q1

REPORT INFORMATION
  Report Type: Spontaneous
  Country: US (occurrence: US)
  Receive Date: 20160210
  Receipt Date: 20160210
  Transmission Date: 20160526
  Serious: No
  Sender: FDA-Public Use
  Company Number: US-ALLERGAN-1307645US

PATIENT
  Age: 54 Year
  Sex: Female

DRUGS (8)
  1. LEVATOR NOS [Concomitant]
     Indication: RENAL DISORDER
     Dosage: 25 MG, QD
     Route: 048
     Dates: start: 201304
  2. BOTOX COSMETIC [Suspect]
     Active Substance: ONABOTULINUMTOXINA
     Indication: SKIN WRINKLING
     Dosage: 16 UNK, UNK
     Route: 030
     Dates: start: 20130328, end: 20130328
  3. PROGESTERONE. [Concomitant]
     Active Substance: PROGESTERONE
     Indication: HORMONE REPLACEMENT THERAPY
     Dosage: UNK
     Dates: start: 2012
  4. BOTOX COSMETIC [Suspect]
     Active Substance: ONABOTULINUMTOXINA
     Dosage: 15 UNK, UNK
     Route: 030
     Dates: start: 20130523, end: 20130523
  5. BOTOX COSMETIC [Suspect]
     Active Substance: ONABOTULINUMTOXINA
     Indication: SKIN WRINKLING
     Dosage: 4 UNITS, SINGLE
     Route: 030
     Dates: start: 20130328, end: 20130328
  6. BOTOX COSMETIC [Suspect]
     Active Substance: ONABOTULINUMTOXINA
     Indication: SKIN WRINKLING
     Dosage: 4 UNITS, SINGLE
     Route: 030
     Dates: start: 20130523, end: 20130523
  7. BOTOX COSMETIC [Suspect]
     Active Substance: ONABOTULINUMTOXINA
     Indication: SKIN WRINKLING
     Dosage: 8 UNK, UNK
     Route: 030
     Dates: start: 20130523, end: 20130523
  8. BOTOX COSMETIC [Suspect]
     Active Substance: ONABOTULINUMTOXINA
     Indication: SKIN WRINKLING
     Dosage: 8 UNK, UNK
     Route: 030
     Dates: start: 20130523, end: 20130523

REACTIONS (3)
  - Off label use [Unknown]
  - Blood lead increased [Unknown]
  - Blood mercury abnormal [Unknown]

NARRATIVE: CASE EVENT DATE: 201304
